FAERS Safety Report 9473856 (Version 1)
Quarter: 2013Q3

REPORT INFORMATION
  Report Type: Spontaneous
  Country: US (occurrence: US)
  Receive Date: 20130823
  Receipt Date: 20130823
  Transmission Date: 20140515
  Serious: No
  Sender: FDA-Public Use
  Company Number: US-BRISTOL-MYERS SQUIBB COMPANY-17055492

PATIENT
  Age: 60 Year
  Sex: Female
  Weight: 90.7 kg

DRUGS (8)
  1. SPRYCEL [Suspect]
     Indication: LEUKAEMIA
     Dosage: INTERRUPTED ON 29MAY12 AND RESTARTED WITH 50MG ON 14JUN12
     Route: 048
     Dates: start: 20120427
  2. DEPAKOTE ER [Concomitant]
  3. ONDANSETRON [Concomitant]
  4. PROZAC [Concomitant]
  5. SYNTHROID [Concomitant]
  6. TRAZODONE HCL [Concomitant]
  7. TYLENOL [Concomitant]
  8. WELLBUTRIN SR [Concomitant]

REACTIONS (3)
  - Amnesia [Not Recovered/Not Resolved]
  - Red blood cell count decreased [Not Recovered/Not Resolved]
  - White blood cell count decreased [Not Recovered/Not Resolved]
